FAERS Safety Report 10382347 (Version 1)
Quarter: 2014Q3

REPORT INFORMATION
  Report Type: Spontaneous
  Country: US (occurrence: None)
  Receive Date: 20140811
  Receipt Date: 20140811
  Transmission Date: 20150326
  Serious: Yes (Hospitalization)
  Sender: FDA-Public Use
  Company Number: 201407117

PATIENT
  Age: 71 Year
  Sex: Male
  Weight: 95.26 kg

DRUGS (7)
  1. TESTIM [Suspect]
     Active Substance: TESTOSTERONE
     Indication: BLOOD TESTOSTERONE DECREASED
     Route: 062
     Dates: start: 2014
  2. BABY ASPIRIN (ACETYLSALICYLIC ACID) [Concomitant]
     Active Substance: ASPIRIN
  3. MORPHINE [Concomitant]
     Active Substance: MORPHINE
  4. METFORMIN [Concomitant]
     Active Substance: METFORMIN HYDROCHLORIDE
  5. ZANFLEX (TIZANIDINE HYDROCHLORIDE) [Concomitant]
  6. MOBIC [Concomitant]
     Active Substance: MELOXICAM
  7. TRAZODONE [Concomitant]
     Active Substance: TRAZODONE HYDROCHLORIDE

REACTIONS (3)
  - Drug administered at inappropriate site [None]
  - Application site pain [None]
  - Application site irritation [None]

NARRATIVE: CASE EVENT DATE: 2014
